FAERS Safety Report 5749739-6 (Version None)
Quarter: 2008Q2

REPORT INFORMATION
  Report Type: 
  Country: None (occurrence: None)
  Receive Date: 20080527
  Receipt Date: 20080515
  Transmission Date: 20081010
  Serious: Yes (Death)
  Sender: FDA-Public Use
  Company Number: US-AVENTIS-200813090US

PATIENT

DRUGS (2)
  1. TAXOTERE [Suspect]
     Indication: BREAST CANCER
     Dosage: DOSE: DOSE DENSE
  2. UNKNOWN DRUG [Concomitant]
     Indication: CHEMOTHERAPY

REACTIONS (1)
  - PNEUMONITIS [None]
